FAERS Safety Report 8285285-6 (Version None)
Quarter: 2012Q2

REPORT INFORMATION
  Report Type: 
  Country: None (occurrence: None)
  Receive Date: 20120413
  Receipt Date: 20120329
  Transmission Date: 20120825
  Serious: Yes (Other)
  Sender: FDA-Public Use
  Company Number: CHPA2012US006423

PATIENT
  Sex: Female

DRUGS (5)
  1. DRUG THERAPY NOS [Concomitant]
     Indication: MIGRAINE
     Dosage: UNK
  2. EXCEDRIN EXTRA STRENGTH TABLETS [Suspect]
     Indication: MIGRAINE
     Dosage: 2 DF, Q 4-6 HOURS PRN
     Route: 048
  3. PERCOCET [Concomitant]
     Indication: MIGRAINE
     Dosage: UNK
     Route: 048
     Dates: start: 20111201, end: 20111201
  4. BOTOX [Concomitant]
     Indication: MIGRAINE
  5. EXCEDRIN (MIGRAINE) [Concomitant]
     Indication: MIGRAINE
     Dosage: UNK DF, UNK

REACTIONS (10)
  - DEPRESSION [None]
  - HEADACHE [None]
  - MALAISE [None]
  - PALPITATIONS [None]
  - DRUG INEFFECTIVE [None]
  - FEELING ABNORMAL [None]
  - IRRITABILITY [None]
  - INAPPROPRIATE SCHEDULE OF DRUG ADMINISTRATION [None]
  - BACK INJURY [None]
  - NAUSEA [None]
